FAERS Safety Report 6475633-1 (Version None)
Quarter: 2009Q4

REPORT INFORMATION
  Report Type: 
  Country: None (occurrence: None)
  Receive Date: 20091204
  Receipt Date: 20091125
  Transmission Date: 20100525
  Serious: Yes (Other)
  Sender: FDA-Public Use
  Company Number: US-PFIZER INC-2009289187

PATIENT
  Sex: Male
  Weight: 107.94 kg

DRUGS (3)
  1. LIPITOR [Suspect]
     Indication: BLOOD CHOLESTEROL INCREASED
     Dosage: 20 MG, 1X/DAY
     Route: 048
     Dates: start: 20070101, end: 20090901
  2. SYNTHROID [Concomitant]
     Indication: THYROIDITIS
     Dosage: UNK
  3. COZAAR [Concomitant]
     Dosage: UNK

REACTIONS (4)
  - BLOOD CREATINE PHOSPHOKINASE INCREASED [None]
  - MYALGIA [None]
  - MYOSITIS [None]
  - PAIN IN EXTREMITY [None]
